FAERS Safety Report 8765400 (Version 2)
Quarter: 2012Q4

REPORT INFORMATION
  Report Type: 
  Country: US (occurrence: US)
  Receive Date: 20120831
  Receipt Date: 20121115
  Transmission Date: 20130627
  Serious: No
  Sender: FDA-Public Use
  Company Number: US-JNJFOC-20120809840

PATIENT
  Age: 43 Year
  Sex: Male
  Weight: 77.38 kg

DRUGS (2)
  1. INVEGA SUSTENNA [Suspect]
     Indication: PSYCHOTIC DISORDER
     Route: 030
     Dates: start: 20120509
  2. INVEGA SUSTENNA [Suspect]
     Indication: SCHIZOPHRENIA
     Route: 030
     Dates: start: 20120509

REACTIONS (3)
  - Schizophrenia, paranoid type [Recovered/Resolved]
  - Injection site pain [Recovered/Resolved]
  - Incorrect dose administered [Unknown]
